FAERS Safety Report 10537772 (Version 2)
Quarter: 2015Q2

REPORT INFORMATION
  Report Type: Spontaneous
  Country: TR (occurrence: TR)
  Receive Date: 20141023
  Receipt Date: 20150626
  Transmission Date: 20150821
  Serious: Yes (Hospitalization, Other)
  Sender: FDA-Public Use
  Company Number: TR-UCBSA-2014015294

PATIENT
  Age: 48 Year
  Sex: Male

DRUGS (19)
  1. OXCARBAZEPINE. [Concomitant]
     Active Substance: OXCARBAZEPINE
     Dosage: 1500 MG/ DAY
  2. EXEGRAN [Concomitant]
     Indication: SEIZURE
  3. CARBAMAZEPINE. [Concomitant]
     Active Substance: CARBAMAZEPINE
     Indication: SEIZURE
     Dosage: 1600
  4. VALPROIC ACID. [Concomitant]
     Active Substance: VALPROIC ACID
     Dosage: 2000 MG/DAY, UNK
  5. PREGABALIN. [Concomitant]
     Active Substance: PREGABALIN
     Dosage: 225 MG
  6. VALPROIC ACID. [Concomitant]
     Active Substance: VALPROIC ACID
     Dosage: 1500
  7. TOPIRAMATE. [Concomitant]
     Active Substance: TOPIRAMATE
     Dosage: 500
  8. OXCARBAZEPINE. [Concomitant]
     Active Substance: OXCARBAZEPINE
     Indication: SEIZURE
     Dosage: 1800
  9. LYRICA [Concomitant]
     Active Substance: PREGABALIN
  10. REMERON [Concomitant]
     Active Substance: MIRTAZAPINE
     Indication: SEIZURE
  11. KEPPRA [Suspect]
     Active Substance: LEVETIRACETAM
     Indication: SEIZURE
     Dosage: UNK
  12. KEPPRA [Suspect]
     Active Substance: LEVETIRACETAM
     Dosage: 2000 MG
  13. VALPROIC ACID. [Concomitant]
     Active Substance: VALPROIC ACID
     Dosage: 2000
  14. ZONISAMIDE. [Concomitant]
     Active Substance: ZONISAMIDE
     Indication: SEIZURE
     Dosage: 300
  15. ZONISAMIDE. [Concomitant]
     Active Substance: ZONISAMIDE
     Dosage: 400 MG/DAY
  16. VALPROIC ACID. [Concomitant]
     Active Substance: VALPROIC ACID
     Indication: SEIZURE
     Dosage: 1500
  17. CARBAMAZEPINE. [Concomitant]
     Active Substance: CARBAMAZEPINE
     Dosage: 1200
  18. TOPIRAMATE. [Concomitant]
     Active Substance: TOPIRAMATE
     Indication: SEIZURE
     Dosage: 300
  19. PREGABALIN. [Concomitant]
     Active Substance: PREGABALIN
     Indication: SEIZURE
     Dosage: 450

REACTIONS (6)
  - Partial seizures [Unknown]
  - Diabetes mellitus [Unknown]
  - Traumatic haematoma [Unknown]
  - Subarachnoid haemorrhage [Unknown]
  - Seizure [Unknown]
  - Hypertension [Unknown]

NARRATIVE: CASE EVENT DATE: 201002
